FAERS Safety Report 20611512 (Version 1)
Quarter: 2022Q1

REPORT INFORMATION
  Report Type: Other
  Country: US (occurrence: None)
  Receive Date: 20220318
  Receipt Date: 20220318
  Transmission Date: 20220423
  Serious: Yes (Hospitalization)
  Sender: FDA-Public Use
  Company Number: US-ROCHE-2629571

PATIENT
  Age: 63 Year
  Sex: Female

DRUGS (9)
  1. XELODA [Suspect]
     Active Substance: CAPECITABINE
     Indication: Malignant neoplasm of unknown primary site
     Dosage: TAKE 3 PILLS BID, 14 DAYS AND 7 DAYS OFF.
     Route: 048
     Dates: start: 201704
  2. XELODA [Suspect]
     Active Substance: CAPECITABINE
     Dosage: TAKE 3 TABLETS BY MOUTH TWICE A DAY 2 WEEK
     Route: 048
  3. XELODA [Suspect]
     Active Substance: CAPECITABINE
     Dosage: TAKE 3 TABLET BY MOUTH TWICE A DAY 2 WEEK ON, 1 WEEK OFF
     Route: 048
  4. BEVACIZUMAB [Suspect]
     Active Substance: BEVACIZUMAB
     Indication: Product used for unknown indication
     Dosage: 25 MG/ML SOLUTION
     Route: 065
  5. ONDANSETRON [Concomitant]
     Active Substance: ONDANSETRON
     Dosage: 2 MG/ML SOLUTION
  6. ATIVAN [Concomitant]
     Active Substance: LORAZEPAM
  7. ZOFRAN [Concomitant]
     Active Substance: ONDANSETRON HYDROCHLORIDE
  8. PYRIDIUM [Concomitant]
     Active Substance: PHENAZOPYRIDINE
  9. SENOKOT [Concomitant]
     Active Substance: SENNOSIDES

REACTIONS (3)
  - Off label use [Unknown]
  - Gastrointestinal disorder [Not Recovered/Not Resolved]
  - Feeding disorder [Not Recovered/Not Resolved]

NARRATIVE: CASE EVENT DATE: 20220303
